FAERS Safety Report 9969548 (Version 5)
Quarter: 2014Q2

REPORT INFORMATION
  Report Type: Spontaneous
  Country: US (occurrence: US)
  Receive Date: 20140306
  Receipt Date: 20140615
  Transmission Date: 20141212
  Serious: No
  Sender: FDA-Public Use
  Company Number: US-009507513-1402USA013033

PATIENT
  Sex: Male

DRUGS (2)
  1. PEGINTRON [Suspect]
     Indication: HEPATITIS C
     Dosage: EVERY WEDNESDAY
  2. REBETOL [Suspect]
     Indication: HEPATITIS C
     Dosage: 600 MG AM, 800 MG PM, EVERY DAY
     Route: 048

REACTIONS (10)
  - Abdominal injury [Not Recovered/Not Resolved]
  - Abdominal infection [Not Recovered/Not Resolved]
  - Pain [Not Recovered/Not Resolved]
  - Dyspepsia [Unknown]
  - Rash erythematous [Unknown]
  - Malaise [Unknown]
  - Pruritus [Unknown]
  - Drug administered at inappropriate site [Unknown]
  - Wrong technique in drug usage process [Unknown]
  - Pyrexia [Unknown]
